FAERS Safety Report 12738293 (Version 2)
Quarter: 2018Q2

REPORT INFORMATION
  Report Type: Spontaneous
  Country: US (occurrence: US)
  Receive Date: 20160912
  Receipt Date: 20180515
  Transmission Date: 20180711
  Serious: No
  Sender: FDA-Public Use
  Company Number: US-SA-2016SA129821

PATIENT
  Sex: Female

DRUGS (4)
  1. NOVOLOG [Concomitant]
     Active Substance: INSULIN ASPART
     Dosage: DOSE:14 UNIT(S)
  2. VICTOZA [Concomitant]
     Active Substance: LIRAGLUTIDE
  3. SOLOSTAR [Concomitant]
     Active Substance: DEVICE
  4. TOUJEO [Suspect]
     Active Substance: INSULIN GLARGINE
     Dosage: DOSE:45 UNIT(S)
     Route: 065

REACTIONS (1)
  - Somnolence [Unknown]
